FAERS Safety Report 4789579-8 (Version None)
Quarter: 2005Q4

REPORT INFORMATION
  Report Type: 
  Country: None (occurrence: None)
  Receive Date: 20051005
  Receipt Date: 20051005
  Transmission Date: 20060501
  Serious: No
  Sender: FDA-Public Use
  Company Number: None

PATIENT
  Age: 40 Year
  Sex: Female
  Weight: 81 kg

DRUGS (7)
  1. AMIODARONE [Suspect]
     Indication: ATRIAL FIBRILLATION
     Dosage: 400 MG X 1 FOLLOWED BY 0.5MG/MIN
  2. AMIODARONE [Suspect]
     Indication: PROPHYLAXIS
     Dosage: 400 MG X 1 FOLLOWED BY 0.5MG/MIN
  3. ASPIRIN [Concomitant]
  4. VANCOMYCIN [Concomitant]
  5. GENTAMICIN [Concomitant]
  6. RANITIDINE [Concomitant]
  7. METOPROLOL [Concomitant]

REACTIONS (1)
  - BLOOD PRESSURE DECREASED [None]
